FAERS Safety Report 7557306-7 (Version None)
Quarter: 2011Q2

REPORT INFORMATION
  Report Type: 
  Country: None (occurrence: None)
  Receive Date: 20110620
  Receipt Date: 20101208
  Transmission Date: 20111010
  Serious: Yes (Other)
  Sender: FDA-Public Use
  Company Number: PHHY2010DE92226

PATIENT
  Age: 64 Year
  Sex: Male

DRUGS (4)
  1. ZOLEDRONIC ACID [Suspect]
     Indication: LUNG NEOPLASM MALIGNANT
  2. CHEMOTHERAPEUTICS NOS [Concomitant]
     Indication: HODGKIN'S DISEASE
  3. ZOLEDRONIC ACID [Suspect]
     Indication: HODGKIN'S DISEASE
     Dosage: UNK UKN, UNK
     Route: 042
  4. CHEMOTHERAPEUTICS NOS [Concomitant]
     Indication: LUNG NEOPLASM MALIGNANT

REACTIONS (2)
  - OSTEONECROSIS OF JAW [None]
  - ORAL PAIN [None]
